FAERS Safety Report 9958573 (Version 1)
Quarter: 2014Q1

REPORT INFORMATION
  Report Type: Spontaneous
  Country: US (occurrence: US)
  Receive Date: 20140305
  Receipt Date: 20140305
  Transmission Date: 20141002
  Serious: Yes (Hospitalization, Other)
  Sender: FDA-Public Use
  Company Number: US-AMGEN-USASP2014014011

PATIENT
  Age: 66 Year
  Sex: Female

DRUGS (1)
  1. PROLIA [Suspect]
     Indication: OSTEOPOROSIS POSTMENOPAUSAL
     Dosage: UNK
     Route: 065
     Dates: start: 2013

REACTIONS (14)
  - Loss of consciousness [Unknown]
  - Tooth disorder [Unknown]
  - Incoherent [Unknown]
  - Balance disorder [Unknown]
  - Memory impairment [Unknown]
  - Tooth loss [Unknown]
  - Mobility decreased [Unknown]
  - Ankle fracture [Unknown]
  - Wheelchair user [Unknown]
  - Pain [Unknown]
  - Fall [Unknown]
  - Oral discomfort [Unknown]
  - Face injury [Unknown]
  - Back pain [Not Recovered/Not Resolved]
